FAERS Safety Report 8366425-7 (Version None)
Quarter: 2012Q2

REPORT INFORMATION
  Report Type: 
  Country: None (occurrence: None)
  Receive Date: 20120517
  Receipt Date: 20120514
  Transmission Date: 20120825
  Serious: Yes (Life-Threatening, Hospitalization)
  Sender: FDA-Public Use
  Company Number: AT-PFIZER INC-2012117493

PATIENT
  Age: 42 Year
  Sex: Female

DRUGS (5)
  1. EFFEXOR XR [Suspect]
     Dosage: 150 MG, UNK
     Dates: start: 20120430
  2. EFFEXOR XR [Suspect]
     Dosage: 75 MG, UNK
     Dates: start: 20120426, end: 20120429
  3. MIRTAZAPINE [Concomitant]
     Dosage: 15 MG, UNK
     Dates: start: 20120426
  4. LORAZEPAM [Suspect]
     Dosage: 2 MG, UNK
     Dates: start: 20120426
  5. SEROQUEL [Suspect]
     Dosage: 100 MG, UNK
     Dates: start: 20120426, end: 20120503

REACTIONS (2)
  - LUNG INFILTRATION [None]
  - PULMONARY EMBOLISM [None]
